FAERS Safety Report 8996949 (Version 1)
Quarter: 2012Q4

REPORT INFORMATION
  Report Type: Spontaneous
  Country: US (occurrence: None)
  Receive Date: 20121221
  Receipt Date: 20121221
  Transmission Date: 20130627
  Serious: Yes (Other)
  Sender: FDA-Public Use
  Company Number: 1534653

PATIENT
  Age: 26 Year
  Sex: Male

DRUGS (3)
  1. CYTARABINE [Suspect]
     Indication: T-CELL LYMPHOMA
  2. CYTARABINE [Suspect]
     Indication: CENTRAL NERVOUS SYSTEM LYMPHOMA
  3. METHOTREXATE [Concomitant]

REACTIONS (3)
  - Pancytopenia [None]
  - Convulsion [None]
  - Drug interaction [None]
